FAERS Safety Report 4964818-9 (Version None)
Quarter: 2006Q2

REPORT INFORMATION
  Report Type: 
  Country: None (occurrence: None)
  Receive Date: 20060406
  Receipt Date: 20060316
  Transmission Date: 20061013
  Serious: Yes (Hospitalization)
  Sender: FDA-Public Use
  Company Number: FI-AVENTIS-200612693GDDC

PATIENT
  Age: 52 Year
  Sex: Female

DRUGS (6)
  1. DOCETAXEL [Suspect]
     Indication: BREAST CANCER
     Dosage: DOSE: 60 MG/M2
     Route: 042
     Dates: start: 20060306, end: 20060306
  2. CAPECITABINE [Suspect]
     Indication: BREAST CANCER
     Dosage: DOSE: CAPCITABINE 1500 MG TWICE DAILY ON DAYS 1 TO 14
     Route: 048
     Dates: start: 20060306, end: 20060320
  3. DEXAMETHASONE TAB [Concomitant]
     Dates: start: 20060305, end: 20060308
  4. OXAZEPAM [Concomitant]
  5. LORAZEPAM [Concomitant]
  6. ZOPICLONE [Concomitant]

REACTIONS (3)
  - ANXIETY [None]
  - PANIC DISORDER [None]
  - SLEEP DISORDER [None]
